FAERS Safety Report 5486047-5 (Version None)
Quarter: 2007Q4

REPORT INFORMATION
  Report Type: 
  Country: None (occurrence: None)
  Receive Date: 20071012
  Receipt Date: 20071004
  Transmission Date: 20080405
  Serious: Yes (Death, Other)
  Sender: FDA-Public Use
  Company Number: 2007SP020180

PATIENT
  Age: 39 Year
  Sex: Male

DRUGS (2)
  1. VIRAFERONPEG [Suspect]
     Indication: HEPATITIS C
     Dosage: 1.5 MCG/KG;QW;
  2. REBETOL [Suspect]
     Indication: HEPATITIS C

REACTIONS (4)
  - DISEASE RECURRENCE [None]
  - OEDEMA PERIPHERAL [None]
  - PULMONARY EMBOLISM [None]
  - SUDDEN DEATH [None]
